FAERS Safety Report 8283567-5 (Version None)
Quarter: 2012Q2

REPORT INFORMATION
  Report Type: 
  Country: None (occurrence: None)
  Receive Date: 20120413
  Receipt Date: 20120405
  Transmission Date: 20120825
  Serious: Yes (Death)
  Sender: FDA-Public Use
  Company Number: IE-ABBOTT-12P-229-0917688-01

PATIENT
  Sex: Female
  Weight: 59 kg

DRUGS (7)
  1. PRILOSEC [Concomitant]
     Indication: GASTRITIS
     Dates: start: 20080613
  2. PRILOSEC [Concomitant]
     Indication: DUODENITIS
  3. PENTASA [Concomitant]
     Indication: CROHN'S DISEASE
     Dates: start: 20050301
  4. HUMIRA [Suspect]
     Indication: CROHN'S DISEASE
     Route: 058
     Dates: start: 20080403, end: 20110401
  5. ACETAMINOPHEN [Concomitant]
     Indication: PAIN
     Dates: start: 20080611
  6. AZATHIOPRINE [Concomitant]
     Indication: CROHN'S DISEASE
     Dates: start: 20060101
  7. ISTIN [Concomitant]
     Indication: HYPERTENSION
     Dosage: STAT
     Dates: start: 20080611, end: 20080611

REACTIONS (1)
  - SUBARACHNOID HAEMORRHAGE [None]
